FAERS Safety Report 9309912 (Version 1)
Quarter: 2013Q2

REPORT INFORMATION
  Report Type: Spontaneous
  Country: US (occurrence: US)
  Receive Date: 20130526
  Receipt Date: 20130526
  Transmission Date: 20140414
  Serious: No
  Sender: FDA-Public Use
  Company Number: US-B.I. PHARMACEUTICALS,INC./RIDGEFIELD-2013-BI-14482BP

PATIENT
  Age: 79 Year
  Sex: Female

DRUGS (10)
  1. PRADAXA [Suspect]
     Indication: ATRIAL FIBRILLATION
     Dosage: 300 MG
     Route: 048
     Dates: start: 201205
  2. DILTIAZEM [Concomitant]
     Route: 048
  3. DIOVAN [Concomitant]
     Indication: HYPERTENSION
     Dosage: 160 MG
     Route: 048
  4. DIGOXIN [Concomitant]
     Dosage: 125 MCG
     Route: 048
  5. MITOMIX [Concomitant]
     Route: 048
  6. TRACLEER [Concomitant]
     Dosage: 250 MG
     Route: 048
  7. SINGULAIR [Concomitant]
     Dosage: 10 MG
     Route: 048
  8. CARDURA [Concomitant]
     Dosage: 2 MG
     Route: 048
  9. ZOLOFT [Concomitant]
     Dosage: 50 MG
     Route: 048
  10. LEVOTHYROXINE [Concomitant]
     Indication: HYPOTHYROIDISM
     Dosage: 25 MCG
     Route: 048

REACTIONS (1)
  - Burning sensation [Not Recovered/Not Resolved]
